FAERS Safety Report 21192387 (Version 1)
Quarter: 2022Q3

REPORT INFORMATION
  Report Type: Spontaneous
  Country: US (occurrence: US)
  Receive Date: 20220809
  Receipt Date: 20220809
  Transmission Date: 20221027
  Serious: No
  Sender: FDA-Public Use
  Company Number: US-BAUSCH-BL-2022-019604

PATIENT
  Age: 84 Year
  Sex: Female
  Weight: 62.652 kg

DRUGS (1)
  1. LATANOPROST [Suspect]
     Active Substance: LATANOPROST
     Indication: Glaucoma
     Route: 048
     Dates: start: 202012, end: 20220609

REACTIONS (5)
  - Feeling hot [Unknown]
  - Burning sensation [Unknown]
  - Pyrexia [Unknown]
  - Pain [Unknown]
  - Incorrect route of product administration [Unknown]

NARRATIVE: CASE EVENT DATE: 20201201
